FAERS Safety Report 5053357-5 (Version None)
Quarter: 2006Q3

REPORT INFORMATION
  Report Type: 
  Country: None (occurrence: None)
  Receive Date: 20060712
  Receipt Date: 20060629
  Transmission Date: 20061208
  Serious: Yes (Other)
  Sender: FDA-Public Use
  Company Number: 2006081837

PATIENT
  Sex: Female

DRUGS (1)
  1. ZMAX (AZITHROMCYN) [Suspect]
     Dosage: (500 MG), ORAL
     Route: 048

REACTIONS (1)
  - LOSS OF CONSCIOUSNESS [None]
